FAERS Safety Report 8192663-2 (Version None)
Quarter: 2012Q1

REPORT INFORMATION
  Report Type: 
  Country: None (occurrence: None)
  Receive Date: 20120308
  Receipt Date: 20120228
  Transmission Date: 20120608
  Serious: Yes (Hospitalization, Other)
  Sender: FDA-Public Use
  Company Number: US-BAYER-2011-084944

PATIENT
  Age: 36 Year
  Sex: Female
  Weight: 87.528 kg

DRUGS (3)
  1. DICYCLOMINE [Concomitant]
     Dosage: UNK
     Dates: start: 20080229
  2. YAZ [Suspect]
     Dosage: UNK
     Dates: start: 20070701, end: 20090901
  3. PHENYLEPH CM [Concomitant]
     Dosage: UNK
     Dates: start: 20120229

REACTIONS (7)
  - EMOTIONAL DISTRESS [None]
  - PAIN [None]
  - CHOLECYSTITIS CHRONIC [None]
  - ANXIETY [None]
  - GENERAL PHYSICAL HEALTH DETERIORATION [None]
  - INJURY [None]
  - GALLBLADDER DISORDER [None]
